FAERS Safety Report 12379557 (Version 2)
Quarter: 2016Q2

REPORT INFORMATION
  Report Type: Spontaneous
  Country: US (occurrence: US)
  Receive Date: 20160517
  Receipt Date: 20160517
  Transmission Date: 20160815
  Serious: Yes (Other)
  Sender: FDA-Public Use
  Company Number: US-JNJFOC-20160426228

PATIENT

DRUGS (1)
  1. POLYSPORIN FIRST AID ANTIBIOTIC [Suspect]
     Active Substance: BACITRACIN\POLYMYXIN B SULFATE
     Indication: WOUND TREATMENT
     Dosage: FULL PEA SIZE, ONCE
     Route: 061

REACTIONS (6)
  - Product formulation issue [Unknown]
  - Tinea pedis [Recovered/Resolved]
  - Off label use [Recovered/Resolved]
  - Therapy change [None]
  - Wound decomposition [Recovered/Resolved]
  - Product use issue [Recovered/Resolved]
